FAERS Safety Report 6874508-3 (Version None)
Quarter: 2010Q3

REPORT INFORMATION
  Report Type: 
  Country: None (occurrence: None)
  Receive Date: 20100723
  Receipt Date: 20100723
  Transmission Date: 20110219
  Serious: Yes (Death)
  Sender: FDA-Public Use
  Company Number: None

PATIENT
  Age: 85 Year
  Sex: Female

DRUGS (1)
  1. BACTRIM DS [Suspect]
     Indication: URINARY TRACT INFECTION
     Dosage: ONE TABLET TWICE DAILY PO, 2-3 DAYS
     Route: 048

REACTIONS (1)
  - BLOOD CREATININE INCREASED [None]
